FAERS Safety Report 6441935-8 (Version None)
Quarter: 2009Q4

REPORT INFORMATION
  Report Type: 
  Country: None (occurrence: None)
  Receive Date: 20091116
  Receipt Date: 20091106
  Transmission Date: 20100525
  Serious: Yes (Other)
  Sender: FDA-Public Use
  Company Number: BR-PFIZER INC-2009294348

PATIENT
  Sex: Male

DRUGS (1)
  1. CELEBRA [Suspect]
     Dosage: UNK
     Route: 048
     Dates: start: 20091104

REACTIONS (1)
  - VASECTOMY [None]
